FAERS Safety Report 4613130-6 (Version None)
Quarter: 2005Q1

REPORT INFORMATION
  Report Type: 
  Country: None (occurrence: None)
  Receive Date: 20050318
  Receipt Date: 20050314
  Transmission Date: 20050727
  Serious: Yes (Death, Life-Threatening, Hospitalization, Disabling)
  Sender: FDA-Public Use
  Company Number: US-MERCK-0503USA02152

PATIENT
  Age: 88 Year
  Sex: Male

DRUGS (1)
  1. COSOPT [Suspect]
     Indication: GLAUCOMA
     Route: 047
     Dates: start: 20030101, end: 20050202

REACTIONS (1)
  - MYOCARDIAL INFARCTION [None]
